FAERS Safety Report 9450149 (Version 1)
Quarter: 2013Q3

REPORT INFORMATION
  Report Type: Spontaneous
  Country: PT (occurrence: PT)
  Receive Date: 20130809
  Receipt Date: 20130809
  Transmission Date: 20140515
  Serious: Yes (Disabling)
  Sender: FDA-Public Use
  Company Number: PT-ASTRAZENECA-2013SE60451

PATIENT
  Sex: Female

DRUGS (4)
  1. SEROQUEL SR [Suspect]
     Indication: DEPRESSION
     Route: 048
  2. SEROQUEL SR [Suspect]
     Indication: SLEEP DISORDER
     Route: 048
  3. DIAZEPAM [Concomitant]
     Route: 048
  4. SEDOXIL [Concomitant]
     Route: 048

REACTIONS (6)
  - Headache [Not Recovered/Not Resolved]
  - Myalgia [Not Recovered/Not Resolved]
  - Musculoskeletal stiffness [Not Recovered/Not Resolved]
  - Gait disturbance [Not Recovered/Not Resolved]
  - Somnolence [Not Recovered/Not Resolved]
  - Off label use [Unknown]
